FAERS Safety Report 10209945 (Version 1)
Quarter: 2014Q2

REPORT INFORMATION
  Report Type: Spontaneous
  Country: IT (occurrence: IT)
  Receive Date: 20140602
  Receipt Date: 20140602
  Transmission Date: 20141212
  Serious: Yes (Other)
  Sender: FDA-Public Use
  Company Number: IT-RANBAXY-2014RR-81703

PATIENT
  Age: 23 Year
  Sex: Female

DRUGS (1)
  1. FLUCONAZOLE [Suspect]
     Indication: ONYCHOMYCOSIS
     Dosage: 100 MG TOTAL
     Route: 048
     Dates: start: 20140428, end: 20140428

REACTIONS (1)
  - Urticaria [Recovered/Resolved]
